FAERS Safety Report 14305064 (Version 1)
Quarter: 2017Q4

REPORT INFORMATION
  Report Type: Spontaneous
  Country: AT (occurrence: AT)
  Receive Date: 20171219
  Receipt Date: 20171219
  Transmission Date: 20180321
  Serious: Yes (Other)
  Sender: FDA-Public Use
  Company Number: AT-OTSUKA-15772817

PATIENT
  Age: 36 Year
  Sex: Male

DRUGS (2)
  1. ABILIFY [Suspect]
     Active Substance: ARIPIPRAZOLE
     Indication: MANIA
     Dosage: IN THE MORNINGS; DOSE INCREASED TO 15MG
     Route: 065
     Dates: start: 200905
  2. LEPONEX [Suspect]
     Active Substance: CLOZAPINE
     Indication: MANIA
     Dosage: 100 MG, QD IN THE EVENING
     Route: 065

REACTIONS (3)
  - Apathy [Unknown]
  - Mania [Recovering/Resolving]
  - Decreased appetite [Unknown]
